FAERS Safety Report 4606103-0 (Version None)
Quarter: 2005Q1

REPORT INFORMATION
  Report Type: 
  Country: None (occurrence: None)
  Receive Date: 20050309
  Receipt Date: 20050301
  Transmission Date: 20050727
  Serious: Yes (Other)
  Sender: FDA-Public Use
  Company Number: 2005UW03330

PATIENT
  Age: 55 Year
  Sex: Male

DRUGS (5)
  1. SEROQUEL [Suspect]
     Dosage: 50 MG BID PO
     Route: 048
  2. GEMFIBROZIL [Suspect]
  3. DEPAKOTE [Concomitant]
  4. LITHIUM [Concomitant]
  5. REPAGLINIDE [Concomitant]

REACTIONS (4)
  - ALANINE AMINOTRANSFERASE INCREASED [None]
  - ASPARTATE AMINOTRANSFERASE INCREASED [None]
  - HEPATIC ENZYME INCREASED [None]
  - NEUTROPENIA [None]
